FAERS Safety Report 4560190-7 (Version None)
Quarter: 2005Q1

REPORT INFORMATION
  Report Type: 
  Country: None (occurrence: None)
  Receive Date: 20050125
  Receipt Date: 20050113
  Transmission Date: 20050727
  Serious: Yes (Death)
  Sender: FDA-Public Use
  Company Number: GB-BRISTOL-MYERS SQUIBB COMPANY-12823902

PATIENT
  Age: 80 Year
  Sex: Male
  Weight: 70 kg

DRUGS (11)
  1. ABILIFY [Suspect]
     Indication: AGITATION
     Route: 048
     Dates: start: 20041126, end: 20041203
  2. ABILIFY [Suspect]
     Indication: DEMENTIA
     Route: 048
     Dates: start: 20041126, end: 20041203
  3. ABILIFY [Suspect]
     Indication: HALLUCINATION
     Route: 048
     Dates: start: 20041126, end: 20041203
  4. ASPIRIN [Concomitant]
  5. IBUPROFEN [Concomitant]
  6. CITALOPRAM [Concomitant]
  7. DIAZEPAM [Concomitant]
  8. ZOPICLONE [Concomitant]
  9. DONEPEZIL HCL [Concomitant]
  10. QUETIAPINE [Concomitant]
  11. CO-DYDRAMOL [Concomitant]

REACTIONS (2)
  - ACUTE MYOCARDIAL INFARCTION [None]
  - CORONARY ARTERY ATHEROSCLEROSIS [None]
